FAERS Safety Report 9523226 (Version 1)
Quarter: 2013Q1

REPORT INFORMATION
  Report Type: Spontaneous
  Country: US (occurrence: None)
  Receive Date: 20130305
  Receipt Date: 20130305
  Transmission Date: 20140127
  Serious: Yes (Life-Threatening, Hospitalization)
  Sender: FDA-Public Use
  Company Number: 163-21880-12072555

PATIENT
  Age: 77 Year
  Sex: Female

DRUGS (2)
  1. REVLIMID [Suspect]
     Indication: MYELODYSPLASTIC SYNDROME
     Route: 048
     Dates: start: 201206, end: 20120706
  2. ASA (ACETYLSALICYLIC AICD) [Concomitant]

REACTIONS (3)
  - Pulmonary embolism [None]
  - Bradycardia [None]
  - Atrial fibrillation [None]
